FAERS Safety Report 26209062 (Version 1)
Quarter: 2025Q4

REPORT INFORMATION
  Report Type: Spontaneous
  Country: US (occurrence: None)
  Receive Date: 20251226
  Receipt Date: 20251226
  Transmission Date: 20260118
  Serious: No
  Sender: FDA-CTU
  Company Number: None

PATIENT
  Sex: Male

DRUGS (1)
  1. HUMIRA [Suspect]
     Active Substance: ADALIMUMAB
     Indication: Colitis ulcerative
     Dosage: OTHER FREQUENCY : EVERY 7 DAYS.;
     Route: 058
     Dates: start: 20251216, end: 20251226

REACTIONS (4)
  - Injection site pain [None]
  - Product quality issue [None]
  - Incorrect dose administered [None]
  - Product dispensing error [None]
